FAERS Safety Report 10576866 (Version 1)
Quarter: 2014Q4

REPORT INFORMATION
  Report Type: Spontaneous
  Country: US (occurrence: US)
  Receive Date: 20141111
  Receipt Date: 20141111
  Transmission Date: 20150529
  Serious: Yes (Hospitalization)
  Sender: FDA-Public Use
  Company Number: US-BRISTOL-MYERS SQUIBB COMPANY-21547559

PATIENT
  Age: 59 Year
  Sex: Male
  Weight: 63.49 kg

DRUGS (2)
  1. ORENCIA [Suspect]
     Active Substance: ABATACEPT
     Route: 042
  2. PREDNISONE. [Concomitant]
     Active Substance: PREDNISONE

REACTIONS (3)
  - Syncope [Unknown]
  - Device related infection [Unknown]
  - Infection [Unknown]

NARRATIVE: CASE EVENT DATE: 20121128
